FAERS Safety Report 20608429 (Version 2)
Quarter: 2022Q3

REPORT INFORMATION
  Report Type: Report from Study
  Country: FI (occurrence: FI)
  Receive Date: 20220317
  Receipt Date: 20220912
  Transmission Date: 20221027
  Serious: Yes (Life-Threatening, Hospitalization)
  Sender: FDA-Public Use
  Company Number: FI-ABBVIE-22K-055-4320879-00

PATIENT
  Age: 70 Year
  Sex: Male

DRUGS (9)
  1. CARBIDOPA\LEVODOPA [Suspect]
     Active Substance: CARBIDOPA\LEVODOPA
     Indication: Product used for unknown indication
     Route: 050
     Dates: start: 202108
  2. CARBIDOPA\LEVODOPA [Suspect]
     Active Substance: CARBIDOPA\LEVODOPA
  3. ASPIRIN [Concomitant]
     Active Substance: ASPIRIN
     Indication: Product used for unknown indication
  4. PANADOL [Concomitant]
     Active Substance: ACETAMINOPHEN
     Indication: Product used for unknown indication
  5. MADOPAR QUICK [Concomitant]
     Indication: Product used for unknown indication
     Dosage: 100/25MG X 1 IN THE DAYTIME
  6. QUETIAPINE FUMARATE [Concomitant]
     Active Substance: QUETIAPINE FUMARATE
     Indication: Product used for unknown indication
  7. MELATONIN [Concomitant]
     Active Substance: MELATONIN
     Indication: Product used for unknown indication
  8. DONEPEZIL [Concomitant]
     Active Substance: DONEPEZIL
     Indication: Product used for unknown indication
  9. OFTASTAD [Concomitant]
     Indication: Product used for unknown indication
     Dosage: FORM STRENGTH 50 MICROG/ML, 1 DROP TO EACH EYE DAILY.

REACTIONS (3)
  - Pyelonephritis [Recovering/Resolving]
  - Cerebral infarction [Recovered/Resolved with Sequelae]
  - Cognitive disorder [Unknown]

NARRATIVE: CASE EVENT DATE: 20211001
